FAERS Safety Report 7762210-5 (Version None)
Quarter: 2011Q3

REPORT INFORMATION
  Report Type: 
  Country: None (occurrence: None)
  Receive Date: 20110920
  Receipt Date: 20110915
  Transmission Date: 20111222
  Serious: Yes (Other)
  Sender: FDA-Public Use
  Company Number: HU-PFIZER INC-2011221122

PATIENT
  Age: 59 Year
  Sex: Female
  Weight: 65 kg

DRUGS (5)
  1. FLECTOR [Concomitant]
     Dosage: UNK
     Dates: start: 19900101
  2. BISOPROLOL FUMARATE [Concomitant]
     Dosage: UNK
     Dates: start: 19980101
  3. ATORVASTATIN CALCIUM [Suspect]
     Dosage: 20 MG, 1X/DAY
     Dates: start: 20110501
  4. PERINDOPRIL [Concomitant]
     Dosage: UNK
     Dates: start: 20050101
  5. NITROMINT [Concomitant]
     Dosage: UNK
     Dates: start: 19950101

REACTIONS (7)
  - SENSORY LOSS [None]
  - LIGAMENT SPRAIN [None]
  - DYSPNOEA [None]
  - FALL [None]
  - DIZZINESS [None]
  - LOSS OF CONSCIOUSNESS [None]
  - SYNCOPE [None]
